FAERS Safety Report 10250154 (Version 1)
Quarter: 2014Q2

REPORT INFORMATION
  Report Type: Spontaneous
  Country: US (occurrence: US)
  Receive Date: 20140620
  Receipt Date: 20140620
  Transmission Date: 20141212
  Serious: No
  Sender: FDA-Public Use
  Company Number: US-BRISTOL-MYERS SQUIBB COMPANY-20701074

PATIENT
  Age: 80 Year
  Sex: Female

DRUGS (7)
  1. ELIQUIS [Suspect]
     Indication: ATRIAL FIBRILLATION
     Route: 048
  2. TERAZOSIN [Concomitant]
  3. CARVEDILOL [Concomitant]
  4. LIBRAX [Concomitant]
     Dosage: 1DF: 3, UNIT: NOS
  5. LEVOTHYROXINE [Concomitant]
  6. CRESTOR [Concomitant]
  7. TAMSULOSIN [Concomitant]

REACTIONS (2)
  - Fatigue [Unknown]
  - Headache [Unknown]
